FAERS Safety Report 6017082-6 (Version None)
Quarter: 2008Q4

REPORT INFORMATION
  Report Type: 
  Country: None (occurrence: None)
  Receive Date: 20081223
  Receipt Date: 20081217
  Transmission Date: 20090506
  Serious: Yes (Other)
  Sender: FDA-Public Use
  Company Number: JP-ALLERGAN-0815471US

PATIENT
  Sex: Male
  Weight: 77 kg

DRUGS (2)
  1. ALESION TABLET [Suspect]
     Indication: PSORIASIS
     Dosage: 20 MG, QD
     Route: 048
     Dates: start: 20080724, end: 20081021
  2. ITRIZOLE [Suspect]
     Indication: ONYCHOMYCOSIS
     Dosage: 50 MG, QD
     Route: 048
     Dates: start: 20080724, end: 20081021

REACTIONS (1)
  - LIVER FUNCTION TEST ABNORMAL [None]
